FAERS Safety Report 11908259 (Version 1)
Quarter: 2016Q1

REPORT INFORMATION
  Report Type: Spontaneous
  Country: US (occurrence: US)
  Receive Date: 20160111
  Receipt Date: 20160111
  Transmission Date: 20160526
  Serious: No
  Sender: FDA-Public Use
  Company Number: US-SHIRE-US201600150

PATIENT
  Age: 82 Year
  Sex: Male
  Weight: 63.49 kg

DRUGS (6)
  1. B3 NIACIN [Concomitant]
     Indication: VASCULAR DEVICE USER
     Dosage: 500 MG, 1X/DAY:QD
     Route: 065
     Dates: start: 200009
  2. COENZYME Q10 [Concomitant]
     Active Substance: UBIDECARENONE
     Indication: PRODUCT USED FOR UNKNOWN INDICATION
     Dosage: 100 MG, 1X/DAY:QD
     Route: 065
     Dates: start: 200009
  3. LIALDA [Suspect]
     Active Substance: MESALAMINE
     Indication: COLITIS MICROSCOPIC
     Dosage: 3.6 G, 1X/DAY:QD
     Route: 048
  4. SIMVASTATIN. [Concomitant]
     Active Substance: SIMVASTATIN
     Indication: VASCULAR DEVICE USER
     Dosage: 40 MG, 1X/DAY:QD
     Route: 065
     Dates: start: 200009
  5. ASPIRIN                            /00002701/ [Concomitant]
     Active Substance: ASPIRIN
     Indication: VASCULAR DEVICE USER
     Dosage: 162 MG, 1X/DAY:QD
     Route: 065
     Dates: start: 200009
  6. LIALDA [Suspect]
     Active Substance: MESALAMINE
     Dosage: 4.8 G, 1X/DAY:QD
     Route: 048
     Dates: start: 20150901

REACTIONS (3)
  - Limb discomfort [Not Recovered/Not Resolved]
  - Condition aggravated [Not Recovered/Not Resolved]
  - Product use issue [Not Recovered/Not Resolved]

NARRATIVE: CASE EVENT DATE: 2015
